FAERS Safety Report 6674281-8 (Version None)
Quarter: 2010Q2

REPORT INFORMATION
  Report Type: 
  Country: None (occurrence: None)
  Receive Date: 20100409
  Receipt Date: 20100405
  Transmission Date: 20101027
  Serious: Yes (Other)
  Sender: FDA-Public Use
  Company Number: US-RB-006200-10

PATIENT
  Age: 28 Year
  Sex: Male

DRUGS (2)
  1. SUBOXONE [Suspect]
     Route: 060
     Dates: start: 20060101, end: 20060101
  2. SUBOXONE [Suspect]
     Route: 060
     Dates: start: 20080101

REACTIONS (1)
  - SKIN CANCER [None]
